FAERS Safety Report 8358523-9 (Version None)
Quarter: 2012Q2

REPORT INFORMATION
  Report Type: 
  Country: None (occurrence: None)
  Receive Date: 20120514
  Receipt Date: 20120511
  Transmission Date: 20120825
  Serious: No
  Sender: FDA-Public Use
  Company Number: US-PFIZER INC-2012080079

PATIENT
  Sex: Female
  Weight: 62.132 kg

DRUGS (7)
  1. GEODON [Suspect]
     Dosage: 40 MG, 1X/DAY
  2. PROZAC [Concomitant]
     Indication: BIPOLAR DISORDER
     Dosage: UNK
  3. GEODON [Suspect]
     Dosage: 60 MG, 1X/DAY
     Route: 048
     Dates: start: 20110101, end: 20120101
  4. GEODON [Suspect]
     Indication: BIPOLAR DISORDER
     Dosage: 80 MG, 1X/DAY
     Route: 048
     Dates: start: 20110617, end: 20110101
  5. GEODON [Suspect]
     Dosage: 40 MG, 1X/DAY
     Route: 048
     Dates: start: 20110101, end: 20110101
  6. METHYLFOLATE [Concomitant]
     Dosage: 15 MG, UNK
  7. WELLBUTRIN [Concomitant]
     Indication: BIPOLAR DISORDER
     Dosage: UNK

REACTIONS (7)
  - FATIGUE [None]
  - WEIGHT DECREASED [None]
  - DRUG INEFFECTIVE [None]
  - DEPRESSION [None]
  - FEELING ABNORMAL [None]
  - RETCHING [None]
  - DRUG INTOLERANCE [None]
